FAERS Safety Report 24384457 (Version 1)
Quarter: 2024Q4

REPORT INFORMATION
  Report Type: Spontaneous
  Country: US (occurrence: US)
  Receive Date: 20241001
  Receipt Date: 20241001
  Transmission Date: 20250114
  Serious: No
  Sender: KINDEVA DRUG DELIVERY
  Company Number: US-Kindeva Drug Delivery L.P.-2162267

PATIENT
  Age: 67 Year
  Sex: Male

DRUGS (1)
  1. ALBUTEROL SULFATE [Suspect]
     Active Substance: ALBUTEROL SULFATE
     Indication: Chronic obstructive pulmonary disease

REACTIONS (6)
  - Product complaint [Unknown]
  - Hypoacusis [Not Recovered/Not Resolved]
  - Product dose omission issue [Unknown]
  - Cough [Unknown]
  - Dyspnoea [Unknown]
  - Device malfunction [Unknown]
